FAERS Safety Report 11673483 (Version 2)
Quarter: 2016Q4

REPORT INFORMATION
  Report Type: Spontaneous
  Country: US (occurrence: US)
  Receive Date: 20151028
  Receipt Date: 20161105
  Transmission Date: 20170206
  Serious: No
  Sender: FDA-Public Use
  Company Number: US-SUN PHARMACEUTICAL INDUSTRIES LTD-2015US-104861

PATIENT
  Age: 76 Year
  Sex: Male

DRUGS (2)
  1. OXYCODONE [Concomitant]
     Active Substance: OXYCODONE
     Indication: PRODUCT USED FOR UNKNOWN INDICATION
     Dosage: UNK
     Route: 065
  2. LORATADINE AND PSEUDOEPHEDRINE SULFATE [Suspect]
     Active Substance: LORATADINE\PSEUDOEPHEDRINE SULFATE
     Indication: SINUS CONGESTION
     Dosage: 1 DF, SINGLE
     Route: 065
     Dates: start: 20150818, end: 20150818

REACTIONS (4)
  - Urinary incontinence [Unknown]
  - Pruritus generalised [Unknown]
  - Dysuria [Unknown]
  - Swollen tongue [Unknown]

NARRATIVE: CASE EVENT DATE: 20150818
